FAERS Safety Report 20322692 (Version 1)
Quarter: 2022Q1

REPORT INFORMATION
  Report Type: Spontaneous
  Country: FR (occurrence: FR)
  Receive Date: 20220111
  Receipt Date: 20220111
  Transmission Date: 20220424
  Serious: Yes (Hospitalization)
  Sender: FDA-Public Use
  Company Number: None

PATIENT
  Age: 68 Year
  Sex: Female

DRUGS (5)
  1. ALBUTEROL [Suspect]
     Active Substance: ALBUTEROL
     Indication: Asthma
     Dosage: UNK (RECEIVED AT HOME)
  2. TERBUTALINE [Suspect]
     Active Substance: TERBUTALINE
     Indication: Asthma
     Dosage: UNK (TWO NEW SERIES OF THREE AEROSOL DOSES)
  3. TERBUTALINE [Suspect]
     Active Substance: TERBUTALINE
     Dosage: UNK (INITIAL DOSE)
  4. IPRATROPIUM [Concomitant]
     Active Substance: IPRATROPIUM
     Indication: Asthma
     Dosage: UNK (INITIAL DOSE)
  5. IPRATROPIUM [Concomitant]
     Active Substance: IPRATROPIUM
     Dosage: UNK (TWO NEW SERIES OF THREE AEROSOL DOSES)

REACTIONS (4)
  - Metabolic acidosis [Recovering/Resolving]
  - Blood lactic acid increased [Recovered/Resolved]
  - Treatment failure [Unknown]
  - Hyperlactacidaemia [Recovering/Resolving]
